FAERS Safety Report 18586042 (Version 1)
Quarter: 2020Q4

REPORT INFORMATION
  Report Type: Spontaneous
  Country: US (occurrence: US)
  Receive Date: 20201207
  Receipt Date: 20201207
  Transmission Date: 20210114
  Serious: No
  Sender: FDA-Public Use
  Company Number: US-OTSUKA-2020_023306

PATIENT
  Sex: Female

DRUGS (3)
  1. ABILIFY MAINTENA [Suspect]
     Active Substance: ARIPIPRAZOLE
     Dosage: 400 MG, (EVEY 30 DAYS)
     Route: 065
  2. ABILIFY [Suspect]
     Active Substance: ARIPIPRAZOLE
     Indication: HALLUCINATION, AUDITORY
     Dosage: 30 MG, UNK
     Route: 048
  3. ABILIFY MAINTENA [Suspect]
     Active Substance: ARIPIPRAZOLE
     Indication: HALLUCINATION, AUDITORY
     Dosage: 400 MG, (EVEY 18 DAYS)
     Route: 065

REACTIONS (7)
  - Incorrect product administration duration [Unknown]
  - Syringe issue [Unknown]
  - Drug ineffective for unapproved indication [Unknown]
  - Insurance issue [Unknown]
  - Product reconstitution quality issue [Unknown]
  - Product dose omission issue [Unknown]
  - Drug effective for unapproved indication [Unknown]
